FAERS Safety Report 9989118 (Version 2)
Quarter: 2014Q1

REPORT INFORMATION
  Report Type: Report from Study
  Country: PR (occurrence: PR)
  Receive Date: 20140310
  Receipt Date: 20140310
  Transmission Date: 20141002
  Serious: No
  Sender: FDA-Public Use
  Company Number: PR-ABBVIE-12P-131-0903823-00

PATIENT
  Age: 39 Year
  Sex: Female
  Weight: 122.58 kg

DRUGS (3)
  1. HUMIRA [Suspect]
     Indication: PSORIATIC ARTHROPATHY
     Route: 058
     Dates: start: 201102, end: 201202
  2. HUMIRA [Suspect]
     Route: 058
     Dates: start: 201202, end: 201210
  3. HUMIRA [Suspect]
     Route: 058
     Dates: start: 201211

REACTIONS (3)
  - Nasopharyngitis [Recovered/Resolved]
  - Sinusitis [Recovered/Resolved]
  - Oropharyngeal pain [Recovered/Resolved]
